FAERS Safety Report 7481020-X (Version None)
Quarter: 2011Q2

REPORT INFORMATION
  Report Type: 
  Country: None (occurrence: None)
  Receive Date: 20110512
  Receipt Date: 20110512
  Transmission Date: 20111010
  Serious: Yes (Disabling)
  Sender: FDA-Public Use
  Company Number: None

PATIENT
  Sex: Female
  Weight: 49.8957 kg

DRUGS (1)
  1. LEVOFLOXACIN [Suspect]
     Indication: URINARY TRACT INFECTION
     Dosage: 500 MG 1 TIME A DAY FOR 3 DAYS
     Dates: start: 20101018, end: 20101020

REACTIONS (6)
  - CARPAL TUNNEL SYNDROME [None]
  - DISCOMFORT [None]
  - TENDONITIS [None]
  - URINARY TRACT INFECTION [None]
  - ARTHRALGIA [None]
  - REPETITIVE STRAIN INJURY [None]
